FAERS Safety Report 12779632 (Version 1)
Quarter: 2016Q3

REPORT INFORMATION
  Report Type: Spontaneous
  Country: US (occurrence: US)
  Receive Date: 20160924
  Receipt Date: 20160924
  Transmission Date: 20161109
  Serious: No
  Sender: FDA-Public Use
  Company Number: None

PATIENT
  Age: 5 Year
  Sex: Female
  Weight: 20.25 kg

DRUGS (3)
  1. DAILY MULTIVITAMIN FOR KIDS [Concomitant]
  2. UP AND UP POWDERLAX [Suspect]
     Active Substance: POLYETHYLENE GLYCOL 3350
     Indication: CONSTIPATION
     Route: 048
     Dates: start: 20160824, end: 20160920
  3. DAILY FISH OIL VITAMIN FOR KIDS [Concomitant]

REACTIONS (1)
  - Drug prescribing error [None]

NARRATIVE: CASE EVENT DATE: 20160921
